FAERS Safety Report 16522532 (Version 3)
Quarter: 2019Q3

REPORT INFORMATION
  Report Type: Spontaneous
  Country: US (occurrence: US)
  Receive Date: 20190703
  Receipt Date: 20190912
  Transmission Date: 20191004
  Serious: No
  Sender: FDA-Public Use
  Company Number: US-PFIZER INC-2019120141

PATIENT
  Age: 30 Year
  Sex: Female
  Weight: 72.56 kg

DRUGS (2)
  1. PROGRAF [Concomitant]
     Active Substance: TACROLIMUS\TACROLIMUS ANHYDROUS
     Dosage: UNK
     Dates: start: 201808
  2. RAPAMUNE [Suspect]
     Active Substance: SIROLIMUS
     Indication: MULTIVISCERAL TRANSPLANTATION
     Dosage: 1 MG, 2X/DAY
     Dates: start: 201811, end: 201812

REACTIONS (6)
  - Chest pain [Recovered/Resolved]
  - Migraine [Recovered/Resolved]
  - Impaired healing [Recovered/Resolved]
  - Product use in unapproved indication [Unknown]
  - Off label use [Unknown]
  - Bone pain [Recovered/Resolved]

NARRATIVE: CASE EVENT DATE: 201811
